FAERS Safety Report 5713013-4 (Version None)
Quarter: 2008Q2

REPORT INFORMATION
  Report Type: 
  Country: None (occurrence: None)
  Receive Date: 20080422
  Receipt Date: 20080411
  Transmission Date: 20081010
  Serious: Yes (Other)
  Sender: FDA-Public Use
  Company Number: JP-ROCHE-552401

PATIENT
  Sex: Female
  Weight: 16 kg

DRUGS (2)
  1. TAMIFLU [Suspect]
     Route: 048
     Dates: start: 20080305, end: 20080305
  2. AMBROXOL HYDROCHLORIDE [Concomitant]
     Route: 048
     Dates: start: 20080305, end: 20080305

REACTIONS (2)
  - CONVULSION [None]
  - VOMITING [None]
